FAERS Safety Report 8965345 (Version 8)
Quarter: 2016Q1

REPORT INFORMATION
  Report Type: Report from Study
  Country: US (occurrence: US)
  Receive Date: 20121213
  Receipt Date: 20160331
  Transmission Date: 20160526
  Serious: Yes (Death, Life-Threatening, Hospitalization, Disabling, Other)
  Sender: FDA-Public Use
  Company Number: PHEH2012US024405

PATIENT
  Age: 32 Year
  Sex: Male
  Weight: 77.8 kg

DRUGS (9)
  1. AMITRIPTYLINE [Concomitant]
     Active Substance: AMITRIPTYLINE
     Indication: INSOMNIA
     Dosage: 10 MG, UNK
     Route: 048
     Dates: start: 20111223
  2. VITAMIN D [Concomitant]
     Active Substance: CHOLECALCIFEROL
     Indication: PRODUCT USED FOR UNKNOWN INDICATION
     Dosage: UNK
     Route: 048
     Dates: end: 20121207
  3. GILENYA [Suspect]
     Active Substance: FINGOLIMOD HYDROCHLORIDE
     Indication: RELAPSING-REMITTING MULTIPLE SCLEROSIS
     Dosage: 0.5 MG, QD
     Route: 048
     Dates: start: 20110128, end: 20110603
  4. GABAPENTIN. [Concomitant]
     Active Substance: GABAPENTIN
     Indication: PAIN
     Dosage: 100 MG, TID
     Route: 048
     Dates: start: 20121206
  5. RITALIN [Concomitant]
     Active Substance: METHYLPHENIDATE HYDROCHLORIDE
     Indication: FATIGUE
     Dosage: 10 MG, UNK
     Route: 065
     Dates: start: 20120326
  6. BACLOFEN. [Concomitant]
     Active Substance: BACLOFEN
     Indication: MUSCLE SPASTICITY
     Dosage: 10 MG, BID
     Route: 048
     Dates: start: 20120522
  7. KLONOPIN [Concomitant]
     Active Substance: CLONAZEPAM
     Indication: ANXIETY
     Dosage: 0.5 MG, UNK
     Route: 048
     Dates: start: 20121206
  8. GILENYA [Suspect]
     Active Substance: FINGOLIMOD HYDROCHLORIDE
     Dosage: 0.5 MG, QD
     Route: 048
     Dates: start: 201109, end: 20121206
  9. PRILOSEC [Concomitant]
     Active Substance: OMEPRAZOLE MAGNESIUM
     Indication: PRODUCT USED FOR UNKNOWN INDICATION
     Dosage: 20 MG, QD
     Route: 048
     Dates: end: 20121222

REACTIONS (58)
  - B precursor type acute leukaemia [Fatal]
  - Tachycardia [Fatal]
  - Blood creatinine increased [Fatal]
  - Hyperbilirubinaemia [Fatal]
  - Chills [Unknown]
  - Respiratory syncytial virus infection [Unknown]
  - Pancytopenia [Unknown]
  - Graft versus host disease [Fatal]
  - Aspartate aminotransferase increased [Fatal]
  - Pyrexia [Fatal]
  - Confusional state [Fatal]
  - Toxic epidermal necrolysis [Fatal]
  - Muscle spasms [Recovering/Resolving]
  - Vomiting [Unknown]
  - Hypertension [Unknown]
  - Orthostatic hypotension [Recovering/Resolving]
  - Vision blurred [Unknown]
  - Cheyne-Stokes respiration [Fatal]
  - Diarrhoea [Fatal]
  - Mental status changes [Fatal]
  - Acute kidney injury [Fatal]
  - Pain in extremity [Recovering/Resolving]
  - Mucosal inflammation [Unknown]
  - Dyspnoea [Unknown]
  - Scleral haemorrhage [Recovering/Resolving]
  - Dizziness [Recovering/Resolving]
  - Leukostasis syndrome [Fatal]
  - Skin lesion [Fatal]
  - Rash erythematous [Unknown]
  - Lung disorder [Unknown]
  - Fatigue [Unknown]
  - Blood glucose increased [Unknown]
  - Musculoskeletal pain [Recovering/Resolving]
  - Headache [Unknown]
  - Alanine aminotransferase increased [Fatal]
  - Tachypnoea [Fatal]
  - Seizure [Fatal]
  - Malaise [Fatal]
  - Skin exfoliation [Fatal]
  - Pulmonary congestion [Unknown]
  - Productive cough [Unknown]
  - Blood pressure decreased [Recovering/Resolving]
  - Haemoglobin decreased [Unknown]
  - Monocytosis [Fatal]
  - Leukoerythroblastosis [Fatal]
  - Leukocytosis [Fatal]
  - Febrile neutropenia [Unknown]
  - Flushing [Unknown]
  - Nausea [Recovering/Resolving]
  - Lymphocyte count decreased [Unknown]
  - CD4 lymphocytes decreased [Unknown]
  - Pneumonia [Unknown]
  - Anaemia [Fatal]
  - Deep vein thrombosis [Recovering/Resolving]
  - Oral pain [Unknown]
  - Blindness [Unknown]
  - Thrombocytopenia [Unknown]
  - Presyncope [Unknown]

NARRATIVE: CASE EVENT DATE: 20110615
